FAERS Safety Report 7377611-7 (Version None)
Quarter: 2011Q1

REPORT INFORMATION
  Report Type: 
  Country: None (occurrence: None)
  Receive Date: 20110328
  Receipt Date: 20110317
  Transmission Date: 20110831
  Serious: Yes (Hospitalization)
  Sender: FDA-Public Use
  Company Number: US-SANOFI-AVENTIS-2010SA076902

PATIENT
  Age: 62 Year
  Sex: Male
  Weight: 114.5 kg

DRUGS (22)
  1. FLUOROURACIL [Suspect]
     Route: 040
     Dates: start: 20070117, end: 20070117
  2. QUINAPRIL [Concomitant]
  3. AZITHROMYCIN [Concomitant]
  4. FLUOROURACIL [Suspect]
     Dosage: DOSE:2.4 GRAM(S)/SQUARE METER
     Route: 041
     Dates: start: 20060802, end: 20060803
  5. NORCO [Concomitant]
  6. CORTICOSTEROID NOS [Concomitant]
     Route: 061
  7. CALCIUM/VITAMIN D [Concomitant]
  8. IBUPROFEN [Concomitant]
  9. NEURONTIN [Concomitant]
  10. FLUOROURACIL [Suspect]
     Route: 040
     Dates: start: 20060802, end: 20060802
  11. OXALIPLATIN [Suspect]
     Route: 041
     Dates: start: 20061206, end: 20061206
  12. LEUCOVORIN [Suspect]
     Route: 041
     Dates: start: 20060802, end: 20060802
  13. FLUOROURACIL [Suspect]
     Dosage: DOSE:2.4 GRAM(S)/SQUARE METER
     Route: 041
     Dates: start: 20070117, end: 20070119
  14. DILTIAZEM HCL [Concomitant]
  15. ASPIRIN [Concomitant]
  16. OXALIPLATIN [Suspect]
     Route: 041
     Dates: start: 20060802, end: 20060802
  17. SIMVASTATIN [Concomitant]
  18. FINASTERIDE [Concomitant]
  19. MULTIPLE VITAMINS [Concomitant]
  20. LEUCOVORIN [Suspect]
     Route: 041
     Dates: start: 20070117, end: 20070117
  21. MIRALAX [Concomitant]
  22. ASCORBIC ACID [Concomitant]

REACTIONS (1)
  - ACUTE MYELOID LEUKAEMIA [None]
